FAERS Safety Report 8242954-1 (Version None)
Quarter: 2012Q1

REPORT INFORMATION
  Report Type: 
  Country: None (occurrence: None)
  Receive Date: 20120329
  Receipt Date: 20120329
  Transmission Date: 20120608
  Serious: Yes (Other)
  Sender: FDA-Public Use
  Company Number: None

PATIENT

DRUGS (1)
  1. VANCOMYCIN [Suspect]
     Dates: start: 20120309, end: 20120329

REACTIONS (2)
  - DRUG LEVEL INCREASED [None]
  - BLOOD CREATININE INCREASED [None]
